FAERS Safety Report 23230681 (Version 1)
Quarter: 2023Q4

REPORT INFORMATION
  Report Type: Spontaneous
  Country: US (occurrence: None)
  Receive Date: 20231123
  Receipt Date: 20231123
  Transmission Date: 20240110
  Serious: Yes (Disabling)
  Sender: FDA-Public Use
  Company Number: None

PATIENT
  Age: 38 Year
  Sex: Female
  Weight: 69.75 kg

DRUGS (11)
  1. BUPROPION HYDROCHLORIDE [Suspect]
     Active Substance: BUPROPION HYDROCHLORIDE
     Dates: start: 20231104
  2. LAMOTRIGINE [Concomitant]
     Active Substance: LAMOTRIGINE
  3. OMEPRAZOLE [Concomitant]
     Active Substance: OMEPRAZOLE
  4. NALTREXONE [Concomitant]
     Active Substance: NALTREXONE
  5. VITAMIN D NOS [Concomitant]
     Active Substance: VITAMIN D NOS
  6. OMEGA 3 [Concomitant]
     Active Substance: CAPSAICIN
  7. CALCIUM [Concomitant]
     Active Substance: CALCIUM
  8. vir b [Concomitant]
  9. IRON [Concomitant]
     Active Substance: IRON
  10. vir c [Concomitant]
  11. DOCUSATE [Concomitant]
     Active Substance: DOCUSATE

REACTIONS (1)
  - Acne cystic [None]

NARRATIVE: CASE EVENT DATE: 20231111
